FAERS Safety Report 5166929-4 (Version None)
Quarter: 2006Q4

REPORT INFORMATION
  Report Type: 
  Country: None (occurrence: None)
  Receive Date: 20061207
  Receipt Date: 20061018
  Transmission Date: 20070319
  Serious: Yes (Other)
  Sender: FDA-Public Use
  Company Number: FR-ELI_LILLY_AND_COMPANY-FR200610003186

PATIENT
  Age: 85 Year
  Sex: Female

DRUGS (5)
  1. FORTEO [Suspect]
     Indication: OSTEOPOROSIS
     Dosage: 20 UG, DAILY (1/D)
     Route: 058
     Dates: start: 20060623
  2. DURAGESIC-100 [Concomitant]
     Indication: PAIN
     Dosage: 25 MG, OTHER
  3. LEXOMIL [Concomitant]
     Indication: ANXIETY
     Dosage: 0.25 D/F, EACH MORNING
  4. LEXOMIL [Concomitant]
     Dosage: 0.25 D/F, OTHER
  5. LEXOMIL [Concomitant]
     Dosage: 0.5 D/F, EACH EVENING

REACTIONS (12)
  - CONSTIPATION [None]
  - DEPRESSED MOOD [None]
  - EAR PAIN [None]
  - FATIGUE [None]
  - LACRIMATION INCREASED [None]
  - LUNG NEOPLASM [None]
  - PAIN [None]
  - POLLAKIURIA [None]
  - URINARY BLADDER POLYP [None]
  - VISUAL ACUITY REDUCED [None]
  - WEIGHT DECREASED [None]
  - WHITE BLOOD CELL COUNT INCREASED [None]
